FAERS Safety Report 15653869 (Version 1)
Quarter: 2018Q4

REPORT INFORMATION
  Report Type: Spontaneous
  Country: US (occurrence: US)
  Receive Date: 20181124
  Receipt Date: 20181124
  Transmission Date: 20190205
  Serious: No
  Sender: FDA-Public Use
  Company Number: None

PATIENT
  Age: 70 Year
  Sex: Female
  Weight: 47.7 kg

DRUGS (7)
  1. SANDOZ ESTRADIOL TRANSDERMAL PATCH 7 DAY 0.0375 MG/DAY [Suspect]
     Active Substance: ESTRADIOL
     Indication: BONE DISORDER
     Dosage: ?          OTHER FREQUENCY:WEEKLY;?
     Route: 062
     Dates: start: 20181101
  2. PROGESTERONE. [Concomitant]
     Active Substance: PROGESTERONE
  3. VITAMIN D3 [Concomitant]
     Active Substance: CHOLECALCIFEROL
  4. CALCIUM [Concomitant]
     Active Substance: CALCIUM
  5. ASPIRIN. [Concomitant]
     Active Substance: ASPIRIN
  6. VITAMIN B12 [Concomitant]
     Active Substance: CYANOCOBALAMIN
  7. MAGNESIUM [Concomitant]
     Active Substance: MAGNESIUM

REACTIONS (7)
  - Fatigue [None]
  - Headache [None]
  - Breast disorder [None]
  - Emotional disorder [None]
  - Underdose [None]
  - Drug level changed [None]
  - Product quality issue [None]

NARRATIVE: CASE EVENT DATE: 20181102
